FAERS Safety Report 8166007-6 (Version None)
Quarter: 2012Q1

REPORT INFORMATION
  Report Type: 
  Country: None (occurrence: None)
  Receive Date: 20120227
  Receipt Date: 20110228
  Transmission Date: 20120608
  Serious: No
  Sender: FDA-Public Use
  Company Number: US-MYLANLABS-2011S1002421

PATIENT
  Age: 18 Year
  Sex: Female
  Weight: 56.7 kg

DRUGS (1)
  1. AMNESTEEM [Suspect]
     Route: 048

REACTIONS (3)
  - HEADACHE [None]
  - FEELING ABNORMAL [None]
  - ADVERSE EVENT [None]
